FAERS Safety Report 4283023-5 (Version None)
Quarter: 2004Q1

REPORT INFORMATION
  Report Type: 
  Country: None (occurrence: None)
  Receive Date: 20040129
  Receipt Date: 20040115
  Transmission Date: 20041129
  Serious: Yes (Other)
  Sender: FDA-Public Use
  Company Number: US-JNJFOC-20040103613

PATIENT
  Age: 41 Year
  Sex: Female

DRUGS (5)
  1. REMICADE [Suspect]
     Indication: RHEUMATOID ARTHRITIS
     Dosage: 240 MG, INTRAVENOUS
     Route: 042
     Dates: start: 20021101, end: 20030901
  2. ENBREL [Suspect]
     Indication: RHEUMATOID ARTHRITIS
     Dosage: 25 MG, 2 IN 1 WEEK, SUBCUTANEOUS
     Route: 058
     Dates: start: 20031006, end: 20031118
  3. METHOTREXATE [Concomitant]
  4. FOLIC ACID [Concomitant]
  5. DIFLOFENAC (DICLOFENAC) [Concomitant]

REACTIONS (3)
  - DRUG INTERACTION [None]
  - FACIAL PALSY [None]
  - NUCLEAR MAGNETIC RESONANCE IMAGING ABNORMAL [None]
